FAERS Safety Report 8475551-3 (Version None)
Quarter: 2012Q2

REPORT INFORMATION
  Report Type: 
  Country: None (occurrence: None)
  Receive Date: 20120628
  Receipt Date: 20110331
  Transmission Date: 20120825
  Serious: Yes (Other)
  Sender: FDA-Public Use
  Company Number: BR-ROCHE-768958

PATIENT
  Sex: Female
  Weight: 60 kg

DRUGS (7)
  1. SOMALIUM [Concomitant]
  2. LABIRIN [Concomitant]
     Indication: LABYRINTHITIS
     Dosage: DOSE: 16MG/TAB
     Route: 048
  3. DIAZEPAM [Suspect]
     Indication: SLEEP DISORDER THERAPY
     Dosage: INTERRUPTED
     Route: 065
  4. AMITRIPTYLINE HCL [Concomitant]
  5. OMEPRAZOLE [Concomitant]
     Indication: GASTRITIS
     Dosage: DOSE: 20 MG/CAP
     Route: 048
  6. GENERIC COMPONENT(S) NOT KNOWN [Concomitant]
     Indication: HYPERTENSION
     Dosage: DRUG NAME: ZART; DOSE: 50MG/TAB
     Route: 048
  7. CLONAZEPAM [Suspect]
     Indication: SLEEP DISORDER THERAPY
     Dosage: DOSE: 2MG/TAB
     Route: 048

REACTIONS (2)
  - DRUG INEFFECTIVE [None]
  - HYPERTENSIVE CRISIS [None]
